FAERS Safety Report 8814445 (Version 1)
Quarter: 2012Q4

REPORT INFORMATION
  Report Type: 
  Country: US (occurrence: US)
  Receive Date: 20120928
  Receipt Date: 20120928
  Transmission Date: 20130627
  Serious: Yes (Other)
  Sender: FDA-Public Use
  Company Number: US-PFIZER INC-2012236588

PATIENT
  Sex: Female

DRUGS (2)
  1. TAPAZOLE [Suspect]
     Indication: THYROID DISORDER
     Dosage: 30 mg, UNK
  2. TAPAZOLE [Suspect]
     Dosage: 5 mg, UNK

REACTIONS (1)
  - Tetany [Unknown]
